FAERS Safety Report 10756299 (Version 1)
Quarter: 2015Q1

REPORT INFORMATION
  Report Type: Spontaneous
  Country: DE (occurrence: DE)
  Receive Date: 20150202
  Receipt Date: 20150202
  Transmission Date: 20150721
  Serious: Yes (Other)
  Sender: FDA-Public Use
  Company Number: GXKR2015DE000718

PATIENT
  Age: 47 Year
  Sex: Male

DRUGS (7)
  1. ALDACTONE [Concomitant]
     Active Substance: SPIRONOLACTONE
  2. MARCUMAR [Concomitant]
     Active Substance: PHENPROCOUMON
     Indication: MITRAL VALVE REPAIR
  3. CARBIMAZOL [Concomitant]
  4. RAMIPRIL. [Concomitant]
     Active Substance: RAMIPRIL
  5. FUROSEMIDE. [Concomitant]
     Active Substance: FUROSEMIDE
  6. METOPROLOL 1A PHARMA [Suspect]
     Active Substance: METOPROLOL
     Indication: HEART VALVE OPERATION
     Dosage: 100 MG, UNK
     Route: 048
  7. ESOMEPRAZOLE [Concomitant]
     Active Substance: ESOMEPRAZOLE

REACTIONS (1)
  - Sudden hearing loss [Not Recovered/Not Resolved]

NARRATIVE: CASE EVENT DATE: 2013
